FAERS Safety Report 8550692-0 (Version None)
Quarter: 2012Q3

REPORT INFORMATION
  Report Type: 
  Country: None (occurrence: None)
  Receive Date: 20120730
  Receipt Date: 20120723
  Transmission Date: 20120928
  Serious: Yes (Other)
  Sender: FDA-Public Use
  Company Number: US-GLAXOSMITHKLINE-A0983797A

PATIENT
  Age: 58 Year
  Sex: Female
  Weight: 50 kg

DRUGS (1)
  1. FLOLAN [Suspect]
     Indication: PRODUCT USED FOR UNKNOWN INDICATION
     Dosage: 22NGKM CONTINUOUS
     Route: 042
     Dates: start: 20100527

REACTIONS (5)
  - HEAD INJURY [None]
  - PALPITATIONS [None]
  - MEDICAL DEVICE COMPLICATION [None]
  - DIZZINESS POSTURAL [None]
  - HEART RATE INCREASED [None]
